FAERS Safety Report 10906453 (Version 1)
Quarter: 2015Q1

REPORT INFORMATION
  Report Type: Report from Study
  Country: FR (occurrence: FR)
  Receive Date: 20150312
  Receipt Date: 20150312
  Transmission Date: 20150721
  Serious: Yes (Hospitalization)
  Sender: FDA-Public Use
  Company Number: FR-ROCHE-1549887

PATIENT
  Age: 70 Year

DRUGS (5)
  1. LERCAN [Concomitant]
     Active Substance: LERCANIDIPINE
     Dosage: DATE OF LAST DOSE PRIOR TO SAE: 18/FEB/2009
     Route: 048
  2. LEXOMIL [Concomitant]
     Active Substance: BROMAZEPAM
     Dosage: DATE OF LAST DOSE PRIOR TO SAE: 18/FEB/2009
     Route: 048
  3. KARDEGIC [Concomitant]
     Active Substance: ASPIRIN LYSINE
     Dosage: DATE OF LAST DOSE PRIOR TO SAE: 18/FEB/2009
     Route: 048
  4. TANGANIL [Concomitant]
     Active Substance: ACETYLLEUCINE
     Dosage: DATE OF LAST DOSE PRIOR TO SAE: 18/FEB/2009
     Route: 048
  5. RITUXIMAB [Suspect]
     Active Substance: RITUXIMAB
     Indication: EXTRANODAL MARGINAL ZONE B-CELL LYMPHOMA (MALT TYPE)
     Route: 042
     Dates: start: 20081105, end: 20090205

REACTIONS (4)
  - General physical health deterioration [Recovered/Resolved]
  - Blood pressure fluctuation [Recovered/Resolved]
  - Vertigo [Recovered/Resolved]
  - Bronchitis [Recovered/Resolved]

NARRATIVE: CASE EVENT DATE: 20090219
